FAERS Safety Report 17003426 (Version 2)
Quarter: 2020Q1

REPORT INFORMATION
  Report Type: Report from Study
  Country: None (occurrence: US)
  Receive Date: 20191107
  Receipt Date: 20200212
  Transmission Date: 20200409
  Serious: Yes (Death)
  Sender: FDA-Public Use
  Company Number: US-ABBVIE-19K-163-2993745-00

PATIENT
  Age: 75 Year
  Sex: Male

DRUGS (3)
  1. VENCLEXTA [Suspect]
     Active Substance: VENETOCLAX
     Indication: ACUTE MYELOID LEUKAEMIA
     Route: 048
  2. VENCLEXTA [Suspect]
     Active Substance: VENETOCLAX
     Indication: MALIGNANT MELANOMA
  3. VENCLEXTA [Suspect]
     Active Substance: VENETOCLAX
     Indication: MALIGNANT MELANOMA

REACTIONS (5)
  - Lymphoma [Fatal]
  - Acute leukaemia [Fatal]
  - Cardiac failure congestive [Fatal]
  - Prostate cancer [Fatal]
  - Corneal disorder [Fatal]

NARRATIVE: CASE EVENT DATE: 201904
